FAERS Safety Report 10449356 (Version 1)
Quarter: 2014Q3

REPORT INFORMATION
  Report Type: Spontaneous
  Country: US (occurrence: US)
  Receive Date: 20140912
  Receipt Date: 20140912
  Transmission Date: 20150326
  Serious: Yes (Other)
  Sender: FDA-Public Use
  Company Number: US-SUN PHARMACEUTICAL INDUSTRIES LTD-2014SUN02048

PATIENT
  Age: 25 Year
  Sex: Male

DRUGS (3)
  1. VENLAFAXINE HYDROCHLORIDE 37.5MG TABLET [Suspect]
     Active Substance: VENLAFAXINE HYDROCHLORIDE
     Indication: PRODUCT USED FOR UNKNOWN INDICATION
     Route: 065
  2. MIRTAZAPINE 7.5 MG TABLET [Interacting]
     Active Substance: MIRTAZAPINE
     Indication: PRODUCT USED FOR UNKNOWN INDICATION
     Dosage: UNK
     Route: 065
  3. PHENIBUT [Interacting]
     Active Substance: DIETARY SUPPLEMENT
     Indication: PRODUCT USED FOR UNKNOWN INDICATION
     Dosage: 1.5 G, BID
     Route: 048

REACTIONS (4)
  - Hypernatraemia [Recovered/Resolved]
  - Loss of consciousness [Recovered/Resolved]
  - Hyperchloraemia [Recovered/Resolved]
  - Drug interaction [Recovered/Resolved]
